FAERS Safety Report 11108752 (Version 1)
Quarter: 2015Q2

REPORT INFORMATION
  Report Type: Spontaneous
  Country: GB (occurrence: GB)
  Receive Date: 20150513
  Receipt Date: 20150513
  Transmission Date: 20150821
  Serious: Yes (Hospitalization, Disabling)
  Sender: FDA-Public Use
  Company Number: GB-ACCORD-030473

PATIENT
  Age: 16 Year
  Sex: Female
  Weight: 40 kg

DRUGS (5)
  1. DOMPERIDONE [Suspect]
     Active Substance: DOMPERIDONE
     Dosage: 10 X 10MG TAKEN IN OVERDOSE
     Route: 048
     Dates: start: 20150417, end: 20150417
  2. SERTRALINE [Suspect]
     Active Substance: SERTRALINE HYDROCHLORIDE
     Dosage: 50MG X28 TABLETS TAKEN IN OVERDOSE
     Route: 048
     Dates: start: 20150417, end: 20150417
  3. CANNABIS SATIVA [Concomitant]
     Active Substance: CANNABIS SATIVA SUBSP. SATIVA FLOWERING TOP
     Dosage: LARGE AMOUNT OF CANNABIS
     Route: 055
     Dates: start: 20150416
  4. ACETYLSALICYLIC ACID [Suspect]
     Active Substance: ASPIRIN
     Dosage: 8 X 100MG IN OVERDOSE.
     Route: 048
     Dates: start: 20150417, end: 20150417
  5. FLUOXETINE [Suspect]
     Active Substance: FLUOXETINE\FLUOXETINE HYDROCHLORIDE
     Dosage: 1 TABLET - UNCLEAR DOSE
     Route: 048
     Dates: start: 20150417, end: 20150417

REACTIONS (13)
  - Mydriasis [Recovered/Resolved]
  - Cognitive disorder [Recovering/Resolving]
  - Dystonia [Recovering/Resolving]
  - Gait disturbance [Recovering/Resolving]
  - Muscle twitching [Unknown]
  - Intention tremor [Recovering/Resolving]
  - Nystagmus [Recovered/Resolved]
  - Palpitations [Unknown]
  - Diplopia [Recovered/Resolved]
  - Tachycardia [Unknown]
  - Intentional overdose [Unknown]
  - Agitation [Unknown]
  - Coordination abnormal [Unknown]

NARRATIVE: CASE EVENT DATE: 20150417
